FAERS Safety Report 16384402 (Version 2)
Quarter: 2019Q2

REPORT INFORMATION
  Report Type: Report from Study
  Country: None (occurrence: DE)
  Receive Date: 20190603
  Receipt Date: 20190613
  Transmission Date: 20190711
  Serious: Yes (Death, Other)
  Sender: FDA-Public Use
  Company Number: DE-ABBVIE-19S-062-2805912-00

PATIENT
  Age: 75 Year
  Sex: Female

DRUGS (1)
  1. DUODOPA [Suspect]
     Active Substance: CARBIDOPA\LEVODOPA
     Indication: PARKINSON^S DISEASE
     Dosage: MD 8.0 ML; CRD 5.0 ML/HR; ED 1.5 ML
     Route: 050
     Dates: start: 20171114

REACTIONS (4)
  - Wound complication [Unknown]
  - Decubitus ulcer [Unknown]
  - Death [Fatal]
  - Skin necrosis [Unknown]

NARRATIVE: CASE EVENT DATE: 20190527
